FAERS Safety Report 6609432-4 (Version None)
Quarter: 2010Q1

REPORT INFORMATION
  Report Type: 
  Country: None (occurrence: None)
  Receive Date: 20100302
  Receipt Date: 20100224
  Transmission Date: 20100710
  Serious: Yes (Hospitalization)
  Sender: FDA-Public Use
  Company Number: DE-WYE-G03258609

PATIENT
  Sex: Female
  Weight: 68 kg

DRUGS (19)
  1. TORISEL [Suspect]
     Indication: METASTATIC RENAL CELL CARCINOMA
     Route: 042
     Dates: start: 20080429, end: 20080716
  2. TORISEL [Suspect]
     Route: 042
     Dates: start: 20080730, end: 20081104
  3. TORISEL [Suspect]
     Route: 042
     Dates: start: 20081211, end: 20090113
  4. TORISEL [Suspect]
     Route: 042
     Dates: start: 20090218, end: 20090407
  5. TORISEL [Suspect]
     Route: 042
     Dates: start: 20090101, end: 20090801
  6. TORISEL [Suspect]
     Route: 042
     Dates: start: 20090812
  7. ALLOPURINOL [Concomitant]
     Route: 048
  8. FUROSEMIDE [Concomitant]
     Indication: HYPERTENSION
     Route: 048
  9. AQUAPHOR [Concomitant]
     Indication: HYPERTENSION
     Dosage: 1 TABLET PER DAY (DOSE UNKNOWN)
     Route: 048
  10. INSULIN [Concomitant]
     Indication: DIABETES MELLITUS
     Dosage: 10 IU IN THE MORNING, 12 IU IN THE EVENING
     Route: 058
  11. AERIUS [Concomitant]
     Indication: PREMEDICATION
     Dosage: 5 MG PRIOR TO TORISEL INFUSION
     Route: 030
     Dates: start: 20090401
  12. TRAMADOL HCL [Concomitant]
  13. ENALAPRIL MALEATE [Concomitant]
     Dosage: 10 MG, FREQUENCY UNKNOWN
  14. SORTIS [Concomitant]
     Dosage: 10 MG, FREQUENCY UNKNOWN
  15. SPIRONOLACTONE [Concomitant]
     Dosage: 50 MG, FREQUENCY UNKNOWN
  16. ACTRAPHANE HM [Concomitant]
  17. ZYRTEC [Concomitant]
     Indication: PREMEDICATION
     Dosage: 10 MG PRIOR TO TORISEL INFUSION
     Route: 042
     Dates: end: 20090401
  18. BELOC ZOK [Concomitant]
     Indication: HYPERTENSION
     Dosage: 1 TABLET PER DAY (DOSE UNKNOWN)
     Route: 048
  19. LISINOPRIL [Concomitant]
     Indication: HYPERTENSION
     Route: 048

REACTIONS (3)
  - BRONCHITIS [None]
  - CONDITION AGGRAVATED [None]
  - DIABETES MELLITUS INADEQUATE CONTROL [None]
